FAERS Safety Report 5613615-X (Version None)
Quarter: 2008Q1

REPORT INFORMATION
  Report Type: 
  Country: None (occurrence: None)
  Receive Date: 20080205
  Receipt Date: 20080129
  Transmission Date: 20080703
  Serious: Yes (Hospitalization, Other)
  Sender: FDA-Public Use
  Company Number: PHEH2008US01290

PATIENT
  Age: 50 Year
  Sex: Female
  Weight: 81.632 kg

DRUGS (8)
  1. TOPROL-XL [Concomitant]
     Indication: HEART RATE
     Dosage: 50 MG, QD
     Route: 048
  2. PLAVIX [Concomitant]
     Dosage: 75 MG, QD
     Route: 048
  3. ASPIRIN [Concomitant]
     Dosage: 325 MG, QD
     Route: 048
  4. REQUIP [Concomitant]
     Indication: RESTLESS LEGS SYNDROME
     Dosage: 1 MG, BID
     Route: 048
  5. CHANTIX [Concomitant]
     Indication: SMOKING CESSATION THERAPY
     Dosage: 1 MG, BID
     Route: 048
  6. ZOCOR [Concomitant]
     Dosage: 40 MG, QD
     Route: 048
  7. TYLENOL [Concomitant]
     Indication: RESTLESS LEGS SYNDROME
     Dosage: 2 TABS PO HS
  8. DIOVAN HCT [Suspect]
     Indication: HYPERTENSION
     Dosage: UNK, QD
     Route: 048
     Dates: start: 19970101, end: 20070101

REACTIONS (9)
  - BACK INJURY [None]
  - BACK PAIN [None]
  - BLOOD PRESSURE INCREASED [None]
  - CARDIAC ENZYMES INCREASED [None]
  - CORONARY ARTERIAL STENT INSERTION [None]
  - MYOCARDIAL INFARCTION [None]
  - SLEEP APNOEA SYNDROME [None]
  - SURGERY [None]
  - WEIGHT INCREASED [None]
